FAERS Safety Report 24911705 (Version 1)
Quarter: 2025Q1

REPORT INFORMATION
  Report Type: Spontaneous
  Country: AU (occurrence: AU)
  Receive Date: 20250131
  Receipt Date: 20250131
  Transmission Date: 20250409
  Serious: Yes (Hospitalization)
  Sender: RANBAXY
  Company Number: AU-SUN PHARMACEUTICAL INDUSTRIES LTD-2025R1-491185

PATIENT
  Sex: Female

DRUGS (10)
  1. LENALIDOMIDE [Suspect]
     Active Substance: LENALIDOMIDE
     Indication: Product used for unknown indication
     Route: 065
  2. LENALIDOMIDE [Suspect]
     Active Substance: LENALIDOMIDE
     Dosage: 25 MILLIGRAM, MONTHLY
     Route: 048
     Dates: start: 20240815, end: 20240829
  3. HYALURONIDASE [Suspect]
     Active Substance: HYALURONIDASE
     Indication: Plasma cell myeloma
     Dosage: 1800 MILLIGRAM, 1/WEEK
     Route: 058
     Dates: start: 20240815, end: 20240829
  4. DEXAMETHASONE [Suspect]
     Active Substance: DEXAMETHASONE
     Indication: Prophylaxis
     Dosage: 20 MILLIGRAM, 1/WEEK
     Route: 065
     Dates: start: 20240801, end: 20240829
  5. ACETAMINOPHEN [Suspect]
     Active Substance: ACETAMINOPHEN
     Indication: Prophylaxis
     Dosage: 1000 MILLIGRAM, WEEKLY
     Route: 048
     Dates: start: 20240801, end: 20240829
  6. DARATUMUMAB [Suspect]
     Active Substance: DARATUMUMAB
     Indication: Plasma cell myeloma
     Dosage: 1800 MILLIGRAM, 1/WEEK
     Route: 058
     Dates: start: 20240815, end: 20240829
  7. ELRANATAMAB [Suspect]
     Active Substance: ELRANATAMAB
     Indication: Plasma cell myeloma
     Dosage: 76 MILLIGRAM, MONTHLY
     Route: 058
     Dates: start: 20240801
  8. BACTRIM [Concomitant]
     Active Substance: SULFAMETHOXAZOLE\TRIMETHOPRIM
     Indication: Product used for unknown indication
     Route: 065
  9. LORATADINE [Concomitant]
     Active Substance: LORATADINE
     Indication: Product used for unknown indication
     Route: 065
  10. PENTAMIDINE ISETHIONATE [Concomitant]
     Active Substance: PENTAMIDINE ISETHIONATE
     Indication: Product used for unknown indication
     Route: 065

REACTIONS (1)
  - Adenovirus infection [Not Recovered/Not Resolved]

NARRATIVE: CASE EVENT DATE: 20240829
